FAERS Safety Report 13289966 (Version 1)
Quarter: 2017Q1

REPORT INFORMATION
  Report Type: Spontaneous
  Country: FR (occurrence: FR)
  Receive Date: 20170302
  Receipt Date: 20170302
  Transmission Date: 20170428
  Serious: Yes (Hospitalization, Other)
  Sender: FDA-Public Use
  Company Number: FR-GLAXOSMITHKLINE-FR2017GSK027505

PATIENT
  Age: 73 Year
  Sex: Female

DRUGS (11)
  1. HYPERIUM [Concomitant]
     Active Substance: RILMENIDINE PHOSPHATE
  2. LEVOTHYROX [Concomitant]
     Active Substance: LEVOTHYROXINE
  3. ACTONEL [Concomitant]
     Active Substance: RISEDRONATE SODIUM
  4. EUPANTOL [Concomitant]
     Active Substance: PANTOPRAZOLE SODIUM
  5. ZOVIRAX [Suspect]
     Active Substance: ACYCLOVIR
     Indication: HERPES ZOSTER
     Dosage: UNK
     Route: 048
     Dates: start: 20170126, end: 20170202
  6. DUOPLAVIN [Concomitant]
     Active Substance: ASPIRIN\CLOPIDOGREL
  7. PRAVASTATIN. [Concomitant]
     Active Substance: PRAVASTATIN
  8. NOVONORM [Concomitant]
     Active Substance: REPAGLINIDE
  9. METFORMIN [Concomitant]
     Active Substance: METFORMIN HYDROCHLORIDE
  10. COAPROVEL [Suspect]
     Active Substance: HYDROCHLOROTHIAZIDE\IRBESARTAN
     Indication: HYPERTENSION
     Dosage: 1 DF, QD
     Route: 048
     Dates: end: 20170206
  11. TRAMADOL. [Suspect]
     Active Substance: TRAMADOL
     Indication: PAIN
     Dosage: UNK
     Route: 048
     Dates: start: 20170126, end: 20170206

REACTIONS (2)
  - Renal failure [Recovering/Resolving]
  - Anuria [Recovered/Resolved]

NARRATIVE: CASE EVENT DATE: 20170206
